FAERS Safety Report 19965270 (Version 1)
Quarter: 2021Q4

REPORT INFORMATION
  Report Type: Spontaneous
  Country: NP (occurrence: NP)
  Receive Date: 20211018
  Receipt Date: 20211018
  Transmission Date: 20220304
  Serious: Yes (Hospitalization, Other)
  Sender: FDA-Public Use
  Company Number: NP-MLMSERVICE-20211001-3139285-1

PATIENT
  Age: 28 Year
  Sex: Male

DRUGS (2)
  1. MORPHINE SULFATE [Suspect]
     Active Substance: MORPHINE SULFATE
     Indication: Sedation
     Dosage: INJECTION
     Route: 065
  2. PROPOFOL [Suspect]
     Active Substance: PROPOFOL
     Indication: Sedation
     Dosage: INJECTION
     Route: 065

REACTIONS (2)
  - Dysphemia [Recovered/Resolved]
  - Speech disorder [Recovered/Resolved]
